FAERS Safety Report 5160505-5 (Version None)
Quarter: 2006Q4

REPORT INFORMATION
  Report Type: 
  Country: None (occurrence: None)
  Receive Date: 20061129
  Receipt Date: 20061117
  Transmission Date: 20070319
  Serious: Yes (Hospitalization)
  Sender: FDA-Public Use
  Company Number: DE-BOEHRINGER INGELHEIM PHARMACEUTICALS, INC.-2006-DE-06110DE

PATIENT
  Sex: Female
  Weight: 75 kg

DRUGS (13)
  1. SPIRIVA [Suspect]
     Route: 055
  2. ACC AKUT [Suspect]
     Route: 048
  3. ASPIRIN [Suspect]
     Route: 048
  4. BRONCHORETARD [Suspect]
     Route: 048
  5. BRONCHOSPRAY [Suspect]
     Route: 055
  6. CORVATON [Suspect]
     Route: 048
  7. DILZEM [Suspect]
     Route: 048
  8. METAMIZOL [Suspect]
     Route: 048
  9. MONO MACK [Suspect]
     Route: 048
  10. PLAVIX [Suspect]
     Route: 048
  11. TOREM [Suspect]
     Route: 048
  12. VIANI [Suspect]
     Route: 055
  13. ZOLOFT [Suspect]
     Route: 048

REACTIONS (2)
  - MEDICATION ERROR [None]
  - OVERDOSE [None]
